FAERS Safety Report 9403183 (Version 2)
Quarter: 2013Q4

REPORT INFORMATION
  Report Type: Spontaneous
  Country: US (occurrence: US)
  Receive Date: 20130716
  Receipt Date: 20131025
  Transmission Date: 20140711
  Serious: Yes (Other)
  Sender: FDA-Public Use
  Company Number: US-ROXANE LABORATORIES, INC.-2013-RO-01153RO

PATIENT
  Age: 39 Year
  Sex: Female

DRUGS (4)
  1. MORPHINE [Suspect]
     Indication: FIBROMYALGIA
     Dates: start: 2009
  2. MORPHINE [Suspect]
     Indication: SPINAL OSTEOARTHRITIS
  3. ANXIETY MEDICATION [Concomitant]
     Indication: ANXIETY
  4. IBUPROFEN [Concomitant]

REACTIONS (5)
  - Chest pain [Unknown]
  - Heart rate increased [Unknown]
  - Tooth loss [Not Recovered/Not Resolved]
  - Drug ineffective [Not Recovered/Not Resolved]
  - Product quality issue [Unknown]
